FAERS Safety Report 7321224-X (Version None)
Quarter: 2011Q1

REPORT INFORMATION
  Report Type: 
  Country: None (occurrence: None)
  Receive Date: 20110228
  Receipt Date: 20110218
  Transmission Date: 20110831
  Serious: Yes (Other)
  Sender: FDA-Public Use
  Company Number: CN-ASTRAZENECA-2011SE09822

PATIENT
  Age: 59 Year
  Sex: Female

DRUGS (4)
  1. GEFITINIB [Suspect]
     Indication: LUNG ADENOCARCINOMA
     Route: 048
     Dates: start: 20070328
  2. CARBOPLATIN [Concomitant]
     Indication: LUNG ADENOCARCINOMA
  3. ALIMTA [Concomitant]
     Indication: LUNG ADENOCARCINOMA
  4. GEMZAR [Concomitant]
     Indication: LUNG ADENOCARCINOMA

REACTIONS (2)
  - INTERSTITIAL LUNG DISEASE [None]
  - SUFFOCATION FEELING [None]
